FAERS Safety Report 5470100-6 (Version None)
Quarter: 2007Q3

REPORT INFORMATION
  Report Type: 
  Country: None (occurrence: None)
  Receive Date: 20070927
  Receipt Date: 20061013
  Transmission Date: 20080115
  Serious: No
  Sender: FDA-Public Use
  Company Number: US-AMGEN-US196771

PATIENT
  Sex: Male

DRUGS (18)
  1. NEUPOGEN [Suspect]
     Indication: CHEMOTHERAPY
     Route: 058
     Dates: start: 20060929
  2. CODEINE SUL TAB [Concomitant]
     Route: 065
  3. TRICOR [Concomitant]
     Route: 065
  4. LEXAPRO [Concomitant]
     Route: 065
  5. NITROGLYCERIN [Concomitant]
     Route: 065
  6. ASPIRIN [Concomitant]
     Route: 065
  7. ZOCOR [Concomitant]
     Route: 065
  8. CLONAZEPAM [Concomitant]
     Route: 065
  9. SYNTHROID [Concomitant]
     Route: 065
  10. ACTOS [Concomitant]
     Route: 065
  11. TOPROL-XL [Concomitant]
     Route: 065
  12. ALTACE [Concomitant]
     Route: 065
  13. DIGITEK [Concomitant]
     Route: 065
  14. PLAVIX [Concomitant]
     Route: 065
  15. DITROPAN [Concomitant]
     Route: 065
  16. NEURONTIN [Concomitant]
     Route: 065
  17. OXYCONTIN [Concomitant]
     Route: 065
  18. OXYCONTIN [Concomitant]

REACTIONS (2)
  - DRUG INEFFECTIVE [None]
  - SINUSITIS [None]
